FAERS Safety Report 8815175 (Version 1)
Quarter: 2012Q4

REPORT INFORMATION
  Report Type: 
  Country: CN (occurrence: CN)
  Receive Date: 20120928
  Receipt Date: 20120928
  Transmission Date: 20130627
  Serious: Yes (Other)
  Sender: FDA-Public Use
  Company Number: CN-ABBOTT-12P-035-0986746-00

PATIENT
  Age: 9 Year
  Sex: Male

DRUGS (5)
  1. DEPAKINE [Suspect]
     Indication: EPILEPSY
     Route: 048
     Dates: start: 2003, end: 2006
  2. DEPAKINE [Suspect]
     Dosage: extended release
     Route: 048
     Dates: start: 2006, end: 2011
  3. DEPAKINE [Suspect]
     Dosage: extended release
     Route: 048
     Dates: start: 2011
  4. TOPAMAX [Concomitant]
     Indication: PRODUCT USED FOR UNKNOWN INDICATION
     Dates: start: 2006
  5. LAMOTRIGINE [Concomitant]
     Indication: PRODUCT USED FOR UNKNOWN INDICATION
     Dates: start: 2010

REACTIONS (5)
  - Head titubation [Unknown]
  - Epilepsy [Recovered/Resolved]
  - Gaze palsy [Unknown]
  - Fall [Unknown]
  - Lethargy [Unknown]
